FAERS Safety Report 8023017-7 (Version None)
Quarter: 2012Q1

REPORT INFORMATION
  Report Type: 
  Country: None (occurrence: None)
  Receive Date: 20120104
  Receipt Date: 20111226
  Transmission Date: 20120608
  Serious: No
  Sender: FDA-Public Use
  Company Number: US-VIROPHARMA INCORPORATED-20111212CINRY2509

PATIENT
  Sex: Female

DRUGS (2)
  1. CINRYZE [Suspect]
     Indication: HEREDITARY ANGIOEDEMA
     Dosage: UNKNOWN
  2. BERINERT (C1 ESTERASE INHIBITOR (HUMAN)) [Concomitant]
     Indication: HEREDITARY ANGIOEDEMA
     Dosage: UNKNOWN
     Route: 065
     Dates: start: 20111201

REACTIONS (4)
  - MATERNAL EXPOSURE DURING PREGNANCY [None]
  - HEREDITARY ANGIOEDEMA [None]
  - ABORTION SPONTANEOUS [None]
  - DRUG DOSE OMISSION [None]
